FAERS Safety Report 9774111 (Version 1)
Quarter: 2013Q4

REPORT INFORMATION
  Report Type: Spontaneous
  Country: US (occurrence: US)
  Receive Date: 20131220
  Receipt Date: 20131220
  Transmission Date: 20140711
  Serious: Yes (Hospitalization)
  Sender: FDA-Public Use
  Company Number: US-BIOGENIDEC-2013BI120394

PATIENT
  Sex: Female

DRUGS (15)
  1. TECFIDERA [Suspect]
     Indication: MULTIPLE SCLEROSIS
     Route: 048
     Dates: start: 20130927
  2. ADVAIR [Concomitant]
  3. CELEBREX [Concomitant]
  4. COREG [Concomitant]
  5. CYMBALTA [Concomitant]
  6. BENADRYL [Concomitant]
  7. ECOTRIN [Concomitant]
  8. HCTZ [Concomitant]
  9. LISINOPRIL [Concomitant]
  10. LORAZEPAM [Concomitant]
  11. LYRICA [Concomitant]
  12. MULTIVITAMIN [Concomitant]
  13. SYNTHROID [Concomitant]
  14. VITAMIN D3 [Concomitant]
  15. HYDROCODONE [Concomitant]

REACTIONS (3)
  - Vomiting [Unknown]
  - Diarrhoea [Unknown]
  - Hypotension [Unknown]
